FAERS Safety Report 8317278 (Version 4)
Quarter: 2012Q4

REPORT INFORMATION
  Report Type: 
  Country: US (occurrence: US)
  Receive Date: 20111230
  Receipt Date: 20121012
  Transmission Date: 20130627
  Serious: Yes (Hospitalization)
  Sender: FDA-Public Use
  Company Number: US-ACTELION-A-US2011-58783

PATIENT
  Age: 67 Year
  Sex: Male

DRUGS (1)
  1. TRACLEER [Suspect]
     Indication: PULMONARY ARTERIAL HYPERTENSION
     Dosage: UNK
     Route: 048

REACTIONS (6)
  - Diabetic ulcer [Unknown]
  - Skin graft [Unknown]
  - Thyroid disorder [Unknown]
  - Sepsis [Unknown]
  - Renal failure [Recovered/Resolved]
  - Hypersensitivity [Unknown]
